FAERS Safety Report 9092347 (Version 1)
Quarter: 2013Q1

REPORT INFORMATION
  Report Type: Spontaneous
  Country: US (occurrence: US)
  Receive Date: 20130131
  Receipt Date: 20130131
  Transmission Date: 20140127
  Serious: Yes (Hospitalization)
  Sender: FDA-Public Use
  Company Number: US-MYLANLABS-2013S1001447

PATIENT
  Age: 57 Year
  Sex: Female

DRUGS (3)
  1. PHENYTOIN [Suspect]
     Indication: CONVULSION PROPHYLAXIS
     Route: 065
  2. DEXAMETHASONE [Interacting]
     Indication: CONVULSION PROPHYLAXIS
     Route: 065
  3. LEVETIRACETAM [Concomitant]
     Route: 065

REACTIONS (3)
  - Rash generalised [Unknown]
  - Thrombocytopenia [Recovered/Resolved]
  - Drug interaction [Recovered/Resolved]
